FAERS Safety Report 6701490-1 (Version None)
Quarter: 2010Q2

REPORT INFORMATION
  Report Type: 
  Country: None (occurrence: None)
  Receive Date: 20100429
  Receipt Date: 20100423
  Transmission Date: 20101027
  Serious: Yes (Death, Hospitalization, Other)
  Sender: FDA-Public Use
  Company Number: US-CELGENEUS-163-21880-10010102

PATIENT
  Sex: Female

DRUGS (2)
  1. REVLIMID [Suspect]
     Route: 048
     Dates: start: 20091130, end: 20091220
  2. REVLIMID [Suspect]
     Route: 048
     Dates: start: 20091001, end: 20091101

REACTIONS (5)
  - HERPES ZOSTER [None]
  - PLATELET COUNT DECREASED [None]
  - PNEUMONIA RESPIRATORY SYNCYTIAL VIRAL [None]
  - SEPSIS [None]
  - STOMATITIS [None]
